FAERS Safety Report 19441266 (Version 1)
Quarter: 2021Q2

REPORT INFORMATION
  Report Type: Spontaneous
  Country: US (occurrence: US)
  Receive Date: 20210617
  Receipt Date: 20210617
  Transmission Date: 20210717
  Serious: No
  Sender: FDA-Public Use
  Company Number: None

PATIENT
  Age: 66 Year
  Sex: Female
  Weight: 63 kg

DRUGS (6)
  1. GABAPENTIN. [Concomitant]
     Active Substance: GABAPENTIN
  2. KEPPRA [Concomitant]
     Active Substance: LEVETIRACETAM
  3. LETROZOLE. [Concomitant]
     Active Substance: LETROZOLE
  4. IBRANCE [Suspect]
     Active Substance: PALBOCICLIB
     Indication: BREAST CANCER
     Route: 048
     Dates: start: 20210528
  5. FAMOTIDINE. [Concomitant]
     Active Substance: FAMOTIDINE
  6. XARELTO [Concomitant]
     Active Substance: RIVAROXABAN

REACTIONS (2)
  - Dry skin [None]
  - Gastrointestinal tract irritation [None]

NARRATIVE: CASE EVENT DATE: 20210601
